FAERS Safety Report 9720126 (Version 2)
Quarter: 2013Q4

REPORT INFORMATION
  Report Type: Report from Study
  Country: US (occurrence: US)
  Receive Date: 20131128
  Receipt Date: 20131128
  Transmission Date: 20140711
  Serious: Yes (Hospitalization)
  Sender: FDA-Public Use
  Company Number: US-ROCHE-1253530

PATIENT
  Sex: Female

DRUGS (3)
  1. XELODA [Suspect]
     Indication: COLON CANCER
     Dosage: EVERY AM AND PM
     Route: 048
     Dates: start: 20130707
  2. XELODA [Suspect]
     Route: 048
     Dates: start: 20130707, end: 20131018
  3. FEMARA [Concomitant]
     Indication: BREAST CANCER
     Route: 065

REACTIONS (8)
  - Erythema [Not Recovered/Not Resolved]
  - Erythema [Not Recovered/Not Resolved]
  - Burning sensation [Not Recovered/Not Resolved]
  - Burning sensation [Not Recovered/Not Resolved]
  - Fatigue [Not Recovered/Not Resolved]
  - Hepatic cancer [Unknown]
  - Liver operation [Unknown]
  - Blister [Recovered/Resolved]
